FAERS Safety Report 6126023-2 (Version None)
Quarter: 2009Q1

REPORT INFORMATION
  Report Type: 
  Country: None (occurrence: None)
  Receive Date: 20090320
  Receipt Date: 20090126
  Transmission Date: 20090719
  Serious: Yes (Other)
  Sender: FDA-Public Use
  Company Number: SE-JNJFOC-20090303969

PATIENT
  Sex: Male

DRUGS (9)
  1. HALOPERIDOL [Suspect]
     Indication: AGITATION
     Route: 065
  2. HALOPERIDOL [Suspect]
     Indication: ANXIETY
     Route: 065
  3. CORDARONE [Suspect]
     Route: 042
  4. CORDARONE [Suspect]
     Indication: ATRIAL FIBRILLATION
     Route: 042
  5. PROPOFOL [Suspect]
     Indication: AGITATION
     Route: 042
  6. PROPOFOL [Suspect]
     Indication: ANXIETY
     Route: 042
  7. DIAZEPAM [Suspect]
     Indication: AGITATION
     Route: 065
  8. DIAZEPAM [Suspect]
     Indication: ANXIETY
     Route: 065
  9. POLYPHARMACY [Concomitant]
     Route: 065

REACTIONS (1)
  - RESPIRATORY FAILURE [None]
